FAERS Safety Report 9025914 (Version 1)
Quarter: 2013Q1

REPORT INFORMATION
  Report Type: Spontaneous
  Country: US (occurrence: None)
  Receive Date: 20130104
  Receipt Date: 20130104
  Transmission Date: 20140127
  Serious: Yes (Other)
  Sender: FDA-Public Use
  Company Number: DSA_61704_2013

PATIENT
  Sex: 0

DRUGS (4)
  1. FLUOROURACIL [Suspect]
     Indication: COLORECTAL CANCER METASTATIC
     Dosage: DF
  2. IRINOTECAN [Suspect]
     Dosage: DF
  3. LEUCOVORIN /00566701/ [Suspect]
     Dosage: DF
  4. BEVACIZUMAB [Suspect]

REACTIONS (1)
  - Asthenia [None]
